FAERS Safety Report 19578838 (Version 5)
Quarter: 2021Q3

REPORT INFORMATION
  Report Type: Report from Study
  Country: CH (occurrence: CH)
  Receive Date: 20210719
  Receipt Date: 20210805
  Transmission Date: 20211014
  Serious: Yes (Life-Threatening, Hospitalization)
  Sender: FDA-Public Use
  Company Number: CH-BRISTOL-MYERS SQUIBB COMPANY-BMS-2021-066294

PATIENT
  Age: 58 Year
  Sex: Female

DRUGS (3)
  1. NIVOLUMAB [Suspect]
     Active Substance: NIVOLUMAB
     Dosage: UNK
     Route: 065
     Dates: start: 20210716
  2. NIVOLUMAB [Suspect]
     Active Substance: NIVOLUMAB
     Indication: METASTATIC RENAL CELL CARCINOMA
     Dosage: 480 MILLIGRAM, Q4WK
     Route: 042
     Dates: start: 20200807, end: 20210611
  3. IPILIMUMAB [Suspect]
     Active Substance: IPILIMUMAB
     Indication: METASTATIC RENAL CELL CARCINOMA
     Dosage: 58 MILLIGRAM, Q6WK
     Route: 042
     Dates: start: 20200821

REACTIONS (1)
  - Hyperglycaemia [Recovered/Resolved with Sequelae]

NARRATIVE: CASE EVENT DATE: 20210706
